FAERS Safety Report 6344732-7 (Version None)
Quarter: 2009Q3

REPORT INFORMATION
  Report Type: 
  Country: None (occurrence: None)
  Receive Date: 20090821
  Receipt Date: 20090505
  Transmission Date: 20100115
  Serious: Yes (Hospitalization)
  Sender: FDA-Public Use
  Company Number: 8046061

PATIENT
  Age: 37 Year
  Sex: Female

DRUGS (1)
  1. CIMZIA [Suspect]
     Dosage: SC
     Route: 058

REACTIONS (1)
  - ABDOMINAL PAIN [None]
